FAERS Safety Report 6690944-2 (Version None)
Quarter: 2010Q2

REPORT INFORMATION
  Report Type: 
  Country: None (occurrence: None)
  Receive Date: 20100421
  Receipt Date: 20100412
  Transmission Date: 20101027
  Serious: Yes (Hospitalization)
  Sender: FDA-Public Use
  Company Number: US-ABBOTT-10P-163-0637840-00

PATIENT
  Sex: Male
  Weight: 65.83 kg

DRUGS (8)
  1. HUMIRA [Suspect]
     Indication: PSORIASIS
     Dates: start: 20090101
  2. NEXIUM [Concomitant]
     Indication: GASTROOESOPHAGEAL REFLUX DISEASE
  3. METOPROLOL TARTRATE [Concomitant]
     Indication: HEART RATE INCREASED
  4. METOPROLOL TARTRATE [Concomitant]
     Indication: HYPERTENSION
  5. WELLBUTRIN [Concomitant]
     Indication: DEPRESSION
  6. LITHIUM [Concomitant]
     Indication: BIPOLAR DISORDER
  7. MIRTAZAPINE [Concomitant]
     Indication: ANXIETY
  8. DARVOCET [Concomitant]
     Indication: ABDOMINAL PAIN

REACTIONS (3)
  - PANCREATIC DISORDER [None]
  - PANCREATITIS [None]
  - PANCREATITIS ACUTE [None]
